FAERS Safety Report 17760567 (Version 1)
Quarter: 2020Q2

REPORT INFORMATION
  Report Type: Spontaneous
  Country: US (occurrence: US)
  Receive Date: 20200508
  Receipt Date: 20200508
  Transmission Date: 20200714
  Serious: Yes (Hospitalization, Other)
  Sender: FDA-Public Use
  Company Number: US-PFIZER INC-2020183232

PATIENT
  Age: 78 Year
  Sex: Female
  Weight: 73.94 kg

DRUGS (1)
  1. PRISTIQ EXTENDED-RELEASE [Suspect]
     Active Substance: DESVENLAFAXINE SUCCINATE
     Indication: DEPRESSION
     Dosage: 50 MG, 1X/DAY
     Route: 048

REACTIONS (5)
  - Confusional state [Unknown]
  - Cardiac failure [Not Recovered/Not Resolved]
  - Hypoacusis [Unknown]
  - Memory impairment [Unknown]
  - Dehydration [Unknown]
